FAERS Safety Report 5964624-2 (Version None)
Quarter: 2008Q4

REPORT INFORMATION
  Report Type: 
  Country: None (occurrence: None)
  Receive Date: 20081125
  Receipt Date: 20081113
  Transmission Date: 20090506
  Serious: Yes (Hospitalization)
  Sender: FDA-Public Use
  Company Number: US-WYE-H06329708

PATIENT
  Sex: Female
  Weight: 44.49 kg

DRUGS (5)
  1. PRISTIQ [Suspect]
     Indication: MAJOR DEPRESSION
     Route: 048
     Dates: start: 20080714, end: 20081003
  2. CLONIDINE [Concomitant]
     Indication: HYPERTENSION
     Dates: start: 20000101
  3. TRAZODONE HCL [Concomitant]
     Indication: DEPRESSION
     Dates: start: 20000101
  4. COZAAR [Concomitant]
     Indication: HYPERTENSION
     Dates: start: 20000101
  5. NORVASC [Concomitant]
     Indication: HYPERTENSION
     Dates: start: 20000101

REACTIONS (2)
  - COUGH [None]
  - HAEMOPTYSIS [None]
